FAERS Safety Report 9837258 (Version 1)
Quarter: 2014Q1

REPORT INFORMATION
  Report Type: Spontaneous
  Country: JP (occurrence: JP)
  Receive Date: 20140123
  Receipt Date: 20140123
  Transmission Date: 20141002
  Serious: Yes (Hospitalization)
  Sender: FDA-Public Use
  Company Number: JP-009507513-1401JPN008193

PATIENT
  Age: 48 Year
  Sex: Female

DRUGS (5)
  1. TRYPTANOL [Suspect]
     Dosage: UNK
     Route: 048
     Dates: start: 201209, end: 201210
  2. MYSLEE [Suspect]
     Route: 048
  3. LOXOPROFEN SODIUM [Suspect]
     Route: 048
  4. MUCOSTA [Suspect]
     Route: 048
  5. VALTREX [Suspect]
     Route: 048

REACTIONS (1)
  - Drug eruption [Unknown]
